APPROVED DRUG PRODUCT: NITROGLYCERIN IN DEXTROSE 5%
Active Ingredient: NITROGLYCERIN
Strength: 0.1MG/ML
Dosage Form/Route: INJECTABLE;INJECTION
Application: A074083 | Product #001
Applicant: HOSPIRA INC
Approved: Oct 26, 1994 | RLD: No | RS: No | Type: DISCN